FAERS Safety Report 5903369-1 (Version None)
Quarter: 2008Q3

REPORT INFORMATION
  Report Type: 
  Country: None (occurrence: None)
  Receive Date: 20080930
  Receipt Date: 20080929
  Transmission Date: 20090109
  Serious: Yes (Death, Hospitalization)
  Sender: FDA-Public Use
  Company Number: NL-BAYER-200615860GDS

PATIENT
  Age: 61 Year
  Sex: Male

DRUGS (6)
  1. NEXAVAR [Suspect]
     Indication: METASTATIC RENAL CELL CARCINOMA
     Route: 048
     Dates: start: 20080910
  2. NEXAVAR [Suspect]
     Route: 048
     Dates: start: 20061117, end: 20080201
  3. NEXAVAR [Suspect]
     Route: 048
     Dates: start: 20080324, end: 20080729
  4. NEXAVAR [Suspect]
     Route: 048
     Dates: start: 20080810, end: 20080801
  5. NEXAVAR [Suspect]
     Route: 048
     Dates: start: 20080901, end: 20080906
  6. INTERFERON [Concomitant]
     Indication: METASTATIC RENAL CELL CARCINOMA
     Route: 065

REACTIONS (20)
  - ALOPECIA [None]
  - BACK PAIN [None]
  - BLOOD PRESSURE DECREASED [None]
  - CHILLS [None]
  - DEATH [None]
  - DIARRHOEA [None]
  - DYSPHONIA [None]
  - EYE SWELLING [None]
  - GLOSSODYNIA [None]
  - HEAD DISCOMFORT [None]
  - HYPERTENSION [None]
  - HYPOAESTHESIA [None]
  - INNER EAR DISORDER [None]
  - NASAL DISORDER [None]
  - PAIN IN EXTREMITY [None]
  - PNEUMONIA [None]
  - PRURITUS [None]
  - SKIN DISORDER [None]
  - SPLINTER HAEMORRHAGES [None]
  - STOMATITIS [None]
